FAERS Safety Report 9704990 (Version 1)
Quarter: 2013Q4

REPORT INFORMATION
  Report Type: Report from Study
  Country: US (occurrence: US)
  Receive Date: 20131122
  Receipt Date: 20131122
  Transmission Date: 20140711
  Serious: No
  Sender: FDA-Public Use
  Company Number: US-ABBVIE-13P-163-1131879-00

PATIENT
  Age: 61 Year
  Sex: Male
  Weight: 120.31 kg

DRUGS (15)
  1. ANDROGEL [Suspect]
     Indication: BLOOD TESTOSTERONE DECREASED
     Dosage: 60.75 MILLIGRAMS DAILY
     Route: 061
     Dates: start: 201302, end: 201307
  2. ASPIRIN [Concomitant]
     Indication: CARDIAC DISORDER
     Dosage: 81 MILLIGRAMS DAILY
  3. HYDROCODONE [Concomitant]
     Indication: NERVE COMPRESSION
  4. HYDROCODONE [Concomitant]
     Indication: NERVE COMPRESSION
  5. GABAPENTIN [Concomitant]
     Indication: PAIN
  6. METFORMIN [Concomitant]
     Indication: DIABETES MELLITUS
  7. BUPROPION HCL [Concomitant]
     Indication: DEPRESSION
  8. VENLAFAXINE [Concomitant]
     Indication: DEPRESSION
  9. LIPITOR [Concomitant]
     Indication: BLOOD CHOLESTEROL INCREASED
  10. DILTIAZEM [Concomitant]
     Indication: HYPERTENSION
  11. REQUIP [Concomitant]
     Indication: TREMOR
  12. LISINOPRIL [Concomitant]
     Indication: HYPERTENSION
  13. ZOLIPIDEM [Concomitant]
     Indication: INSOMNIA
  14. TRAZADONE [Concomitant]
     Indication: INSOMNIA
  15. UNKNOWN EYE DROPS [Concomitant]
     Indication: GLAUCOMA
     Route: 047

REACTIONS (3)
  - Nervousness [Not Recovered/Not Resolved]
  - Tremor [Not Recovered/Not Resolved]
  - Asthenia [Not Recovered/Not Resolved]
